FAERS Safety Report 21765571 (Version 3)
Quarter: 2024Q1

REPORT INFORMATION
  Report Type: Spontaneous
  Country: FR (occurrence: FR)
  Receive Date: 20221222
  Receipt Date: 20240329
  Transmission Date: 20240410
  Serious: Yes (Other)
  Sender: FDA-Public Use
  Company Number: FR-MYLANLABS-2022M1126625

PATIENT
  Age: 29 Year
  Sex: Female

DRUGS (25)
  1. VENLAFAXINE [Suspect]
     Active Substance: VENLAFAXINE HYDROCHLORIDE
     Indication: Anxiolytic therapy
     Dosage: UNK, SUFFICIENT DOSES OVER SEVERAL MONTHS
     Route: 065
  2. VENLAFAXINE [Suspect]
     Active Substance: VENLAFAXINE HYDROCHLORIDE
     Indication: Post-traumatic neuralgia
  3. VENLAFAXINE [Suspect]
     Active Substance: VENLAFAXINE HYDROCHLORIDE
     Indication: Trigeminal neuropathy
  4. CARBAMAZEPINE [Suspect]
     Active Substance: CARBAMAZEPINE
     Indication: Neuralgia
     Dosage: UNK
     Route: 065
  5. CARBAMAZEPINE [Suspect]
     Active Substance: CARBAMAZEPINE
     Indication: Post-traumatic neuralgia
  6. CARBAMAZEPINE [Suspect]
     Active Substance: CARBAMAZEPINE
     Indication: Trigeminal neuropathy
  7. DULOXETINE [Suspect]
     Active Substance: DULOXETINE
     Indication: Anxiolytic therapy
     Dosage: UNK, SUFFICIENT DOSES OVER SEVERAL MONTHS
     Route: 065
  8. DULOXETINE [Suspect]
     Active Substance: DULOXETINE
     Indication: Post-traumatic neuralgia
  9. DULOXETINE [Suspect]
     Active Substance: DULOXETINE
     Indication: Trigeminal neuropathy
  10. PREGABALIN [Suspect]
     Active Substance: PREGABALIN
     Indication: Neuralgia
     Dosage: 150 MILLIGRAM, QD
     Route: 065
  11. PREGABALIN [Suspect]
     Active Substance: PREGABALIN
     Dosage: UNK
     Route: 065
  12. ROPIVACAINE [Suspect]
     Active Substance: ROPIVACAINE
     Indication: Nerve block
     Dosage: 7.5 MILLIGRAM PER MILLILITRE
     Route: 065
  13. ROPIVACAINE [Suspect]
     Active Substance: ROPIVACAINE
     Indication: Post-traumatic neuralgia
  14. ROPIVACAINE [Suspect]
     Active Substance: ROPIVACAINE
     Indication: Trigeminal neuropathy
  15. CLONAZEPAM [Suspect]
     Active Substance: CLONAZEPAM
     Indication: Neuralgia
     Dosage: 2.5 MG/ML 6 DROP, TID
     Route: 065
  16. AMITRIPTYLINE HYDROCHLORIDE [Suspect]
     Active Substance: AMITRIPTYLINE HYDROCHLORIDE
     Indication: Neuralgia
     Dosage: UNK
     Route: 065
  17. AMITRIPTYLINE HYDROCHLORIDE [Suspect]
     Active Substance: AMITRIPTYLINE HYDROCHLORIDE
     Indication: Post-traumatic neuralgia
  18. AMITRIPTYLINE HYDROCHLORIDE [Suspect]
     Active Substance: AMITRIPTYLINE HYDROCHLORIDE
     Indication: Trigeminal neuropathy
  19. BOTOX [Concomitant]
     Active Substance: ONABOTULINUMTOXINA
     Indication: Neuralgia
     Dosage: 25 IU INTERNATIONAL UNIT(S) OF BTX-A
     Route: 023
  20. BOTOX [Concomitant]
     Active Substance: ONABOTULINUMTOXINA
     Indication: Post-traumatic neuralgia
     Dosage: 25 INTERNATIONAL UNIT (RECEIVED TWO INJECTIONS  )
     Route: 053
  21. BOTOX [Concomitant]
     Active Substance: ONABOTULINUMTOXINA
     Indication: Trigeminal neuropathy
  22. CLONAZEPAM [Concomitant]
     Active Substance: CLONAZEPAM
     Indication: Post-traumatic neuralgia
     Dosage: 6 GTT DROPS, TID (2.5 MG/ML; 6 DROPS THREE TIMES DAILY)
     Route: 065
  23. CLONAZEPAM [Concomitant]
     Active Substance: CLONAZEPAM
     Indication: Trigeminal neuropathy
  24. PREGABALIN [Concomitant]
     Active Substance: PREGABALIN
     Indication: Post-traumatic neuralgia
     Dosage: 150 MILLIGRAM, QD
     Route: 065
  25. PREGABALIN [Concomitant]
     Active Substance: PREGABALIN
     Indication: Trigeminal neuropathy

REACTIONS (12)
  - Amnesia [Unknown]
  - Impaired quality of life [Unknown]
  - Disturbance in attention [Unknown]
  - Weight increased [Unknown]
  - Fatigue [Unknown]
  - Therapeutic product effect incomplete [Unknown]
  - Off label use [Unknown]
  - Injection site discomfort [Recovered/Resolved]
  - Flushing [Recovered/Resolved]
  - Facial paresis [Not Recovered/Not Resolved]
  - Treatment failure [Unknown]
  - Maternal exposure during pregnancy [Unknown]
